FAERS Safety Report 10232086 (Version 1)
Quarter: 2014Q2

REPORT INFORMATION
  Report Type: Spontaneous
  Country: US (occurrence: US)
  Receive Date: 20140612
  Receipt Date: 20140612
  Transmission Date: 20141212
  Serious: No
  Sender: FDA-Public Use
  Company Number: US-BIOGENIDEC-2014BI050454

PATIENT
  Sex: Female

DRUGS (3)
  1. TECFIDERA [Suspect]
     Indication: MULTIPLE SCLEROSIS
  2. AVONEX [Concomitant]
     Indication: MULTIPLE SCLEROSIS
     Route: 030
     Dates: start: 20070101
  3. IVIG [Concomitant]

REACTIONS (4)
  - Drug hypersensitivity [Recovered/Resolved]
  - Skin discolouration [Recovered/Resolved]
  - Peripheral swelling [Recovered/Resolved]
  - Alopecia [Recovered/Resolved]
